FAERS Safety Report 5334393-8 (Version None)
Quarter: 2007Q2

REPORT INFORMATION
  Report Type: 
  Country: None (occurrence: None)
  Receive Date: 20070525
  Receipt Date: 20070523
  Transmission Date: 20071010
  Serious: Yes (Death, Other)
  Sender: FDA-Public Use
  Company Number: GB-BRISTOL-MYERS SQUIBB COMPANY-13790696

PATIENT

DRUGS (5)
  1. CAPTOPRIL [Suspect]
     Indication: HYPERTENSION
     Route: 064
     Dates: start: 19891006, end: 19920203
  2. BECLOMETHASONE DIPROPIONATE [Concomitant]
     Indication: ASTHMA
     Route: 064
     Dates: start: 19891006
  3. BRICANYL [Concomitant]
     Indication: ASTHMA
     Route: 064
     Dates: start: 19891006
  4. LEVOTHYROXINE SODIUM [Concomitant]
     Indication: HYPOTHYROIDISM
     Route: 064
     Dates: start: 19891006
  5. VOLMAX [Concomitant]
     Indication: ASTHMA
     Route: 064
     Dates: start: 19891006

REACTIONS (2)
  - DRUG EXPOSURE DURING PREGNANCY [None]
  - HYPOPLASTIC LEFT HEART SYNDROME [None]
